FAERS Safety Report 14693106 (Version 1)
Quarter: 2018Q1

REPORT INFORMATION
  Report Type: Spontaneous
  Country: JP (occurrence: JP)
  Receive Date: 20180329
  Receipt Date: 20180329
  Transmission Date: 20180509
  Serious: Yes (Hospitalization, Other)
  Sender: FDA-Public Use
  Company Number: JP-MACLEODS PHARMACEUTICALS US LTD-MAC2018012000

PATIENT

DRUGS (4)
  1. CHLORPROMAZINE HYDROCHLORIDE. [Concomitant]
     Active Substance: CHLORPROMAZINE HYDROCHLORIDE
     Indication: PRODUCT USED FOR UNKNOWN INDICATION
     Route: 065
  2. ASPIRIN. [Concomitant]
     Active Substance: ASPIRIN
     Indication: PRODUCT USED FOR UNKNOWN INDICATION
     Dosage: UNK
     Route: 065
  3. YOKUKANSAN [Concomitant]
     Active Substance: HERBALS
     Indication: DEMENTIA ALZHEIMER^S TYPE
     Dosage: 7.5 GR/DAY
     Route: 065
     Dates: start: 201603
  4. MEMANTINE. [Suspect]
     Active Substance: MEMANTINE
     Indication: DEMENTIA ALZHEIMER^S TYPE
     Dosage: 10 MG, QD
     Route: 065
     Dates: start: 201603, end: 2016

REACTIONS (3)
  - Hepatotoxicity [Recovered/Resolved]
  - Jaundice [Recovered/Resolved]
  - Drug-induced liver injury [Recovered/Resolved]

NARRATIVE: CASE EVENT DATE: 2016
